FAERS Safety Report 14358904 (Version 3)
Quarter: 2019Q1

REPORT INFORMATION
  Report Type: Report from Study
  Country: US (occurrence: US)
  Receive Date: 20180105
  Receipt Date: 20190322
  Transmission Date: 20190417
  Serious: Yes (Death, Life-Threatening, Hospitalization)
  Sender: FDA-Public Use
  Company Number: US-CELGENEUS-USA-20171203640

PATIENT
  Age: 31 Year
  Sex: Male
  Weight: 64 kg

DRUGS (8)
  1. FLAGYL [Concomitant]
     Active Substance: METRONIDAZOLE\METRONIDAZOLE HYDROCHLORIDE
     Indication: COLITIS ULCERATIVE
     Route: 048
  2. LEVOFLOXACIN. [Concomitant]
     Active Substance: LEVOFLOXACIN
     Indication: COLITIS ULCERATIVE
     Route: 048
  3. TYLENOL [Concomitant]
     Active Substance: ACETAMINOPHEN
     Indication: PRODUCT USED FOR UNKNOWN INDICATION
     Route: 065
  4. ATORVASTATIN [Concomitant]
     Active Substance: ATORVASTATIN
     Indication: PRODUCT USED FOR UNKNOWN INDICATION
     Dosage: 10 MILLIGRAM
     Route: 048
  5. MYLANTA [Concomitant]
     Active Substance: ALUMINUM HYDROXIDE\DIMETHICONE\MAGNESIUM HYDROXIDE
     Indication: PRODUCT USED FOR UNKNOWN INDICATION
     Route: 048
  6. DIFLUCAN [Concomitant]
     Active Substance: FLUCONAZOLE
     Indication: OROPHARYNGEAL CANDIDIASIS
     Dosage: 100 MILLIGRAM
     Route: 048
  7. VIDAZA [Suspect]
     Active Substance: AZACITIDINE
     Indication: MYELODYSPLASTIC SYNDROME
     Dosage: 137 MILLIGRAM
     Route: 058
     Dates: start: 20140602, end: 20140603
  8. MULTIVITAMIN [Concomitant]
     Active Substance: VITAMINS
     Indication: OROPHARYNGEAL CANDIDIASIS
     Route: 048

REACTIONS (8)
  - Cerebrovascular accident [Recovered/Resolved]
  - Pancytopenia [Not Recovered/Not Resolved]
  - Pancytopenia [Recovered/Resolved]
  - Myocarditis [Recovered/Resolved]
  - Pancytopenia [Recovered/Resolved]
  - Pharyngitis [Recovered/Resolved]
  - Haemorrhagic infarction [Recovered/Resolved]
  - Cerebrovascular accident [Fatal]

NARRATIVE: CASE EVENT DATE: 20140604
